FAERS Safety Report 16058515 (Version 1)
Quarter: 2019Q1

REPORT INFORMATION
  Report Type: Spontaneous
  Country: FR (occurrence: FR)
  Receive Date: 20190311
  Receipt Date: 20190311
  Transmission Date: 20190418
  Serious: Yes (Other)
  Sender: FDA-Public Use
  Company Number: FR-ALLERGAN-1903023US

PATIENT
  Sex: Female
  Weight: 65 kg

DRUGS (3)
  1. ESCITALOPRAM OXALATE - BP [Suspect]
     Active Substance: ESCITALOPRAM OXALATE
     Indication: ANTIDEPRESSANT THERAPY
     Dosage: UNK
     Route: 065
  2. XALKORI [Suspect]
     Active Substance: CRIZOTINIB
     Indication: LUNG NEOPLASM MALIGNANT
     Dosage: 1 DF, BID
     Route: 048
     Dates: start: 20190108, end: 20190212
  3. CARTEOL F [Concomitant]
     Dosage: 1 DF, QD
     Route: 047
     Dates: start: 20180315

REACTIONS (4)
  - Paraesthesia [Recovering/Resolving]
  - Electrocardiogram QT prolonged [Unknown]
  - Contraindicated product prescribed [Unknown]
  - Dyspnoea [Not Recovered/Not Resolved]

NARRATIVE: CASE EVENT DATE: 20190212
